FAERS Safety Report 13436290 (Version 1)
Quarter: 2017Q2

REPORT INFORMATION
  Report Type: Spontaneous
  Country: CN (occurrence: CN)
  Receive Date: 20170413
  Receipt Date: 20170413
  Transmission Date: 20170830
  Serious: Yes (Hospitalization)
  Sender: FDA-Public Use
  Company Number: CN-MYLANLABS-2017M1022788

PATIENT

DRUGS (4)
  1. MOXIFLOXACIN. [Suspect]
     Active Substance: MOXIFLOXACIN
     Indication: PNEUMONIA KLEBSIELLA
     Route: 065
  2. SULBENICILLIN [Concomitant]
     Indication: PNEUMONIA KLEBSIELLA
     Route: 065
  3. DOXYCYCLINE. [Suspect]
     Active Substance: DOXYCYCLINE
     Indication: PNEUMONIA KLEBSIELLA
     Route: 065
  4. VIDARABINE [Suspect]
     Active Substance: VIDARABINE
     Indication: PNEUMONIA KLEBSIELLA
     Route: 065

REACTIONS (2)
  - Central nervous system lesion [Recovered/Resolved]
  - Psychiatric symptom [Recovered/Resolved]
